FAERS Safety Report 5781997-4 (Version None)
Quarter: 2008Q2

REPORT INFORMATION
  Report Type: 
  Country: None (occurrence: None)
  Receive Date: 20080623
  Receipt Date: 20080108
  Transmission Date: 20081010
  Serious: No
  Sender: FDA-Public Use
  Company Number: US-ASTRAZENECA-2008UW00560

PATIENT
  Age: 54 Year
  Sex: Female
  Weight: 117.9 kg

DRUGS (3)
  1. RHINOCORT [Suspect]
     Indication: HYPERSENSITIVITY
     Dosage: ONE SPRAY EACH NOSTRIL, 32 MCG, 120 M SPRAY/UNIT
     Route: 045
  2. ZYRTEC [Concomitant]
  3. THYROID TAB [Concomitant]

REACTIONS (2)
  - PRURITUS [None]
  - URTICARIA [None]
